FAERS Safety Report 7573306-5 (Version None)
Quarter: 2011Q2

REPORT INFORMATION
  Report Type: 
  Country: None (occurrence: None)
  Receive Date: 20110627
  Receipt Date: 20110614
  Transmission Date: 20111010
  Serious: No
  Sender: FDA-Public Use
  Company Number: PHHY2011US52605

PATIENT
  Sex: Male

DRUGS (8)
  1. PERCOCET [Concomitant]
     Dosage: 500 MG,
  2. WELLBUTRIN [Concomitant]
     Dosage: 75 MG, UNK
  3. ABILIFY [Concomitant]
     Dosage: 10 MG, UNK
  4. PHENERGAN HCL [Concomitant]
     Dosage: 25 MG, UNK
  5. ADDERALL 10 [Concomitant]
     Dosage: 10 MG, UNK
  6. TASIGNA [Suspect]
     Dosage: 400 MG, BID
     Route: 048
  7. CYMBALTA [Concomitant]
     Dosage: 20 MG, UNK
  8. PERCOCET [Concomitant]
     Dosage: 7.5 MG, UNK

REACTIONS (4)
  - PAIN [None]
  - ARTHRALGIA [None]
  - NAUSEA [None]
  - FATIGUE [None]
